FAERS Safety Report 6640149-6 (Version None)
Quarter: 2010Q1

REPORT INFORMATION
  Report Type: 
  Country: None (occurrence: None)
  Receive Date: 20100318
  Receipt Date: 20100315
  Transmission Date: 20100710
  Serious: Yes (Death, Other)
  Sender: FDA-Public Use
  Company Number: DE-AMGEN-UK206481

PATIENT
  Age: 81 Year
  Sex: Female
  Weight: 71 kg

DRUGS (12)
  1. ARANESP [Suspect]
     Indication: RENAL FAILURE CHRONIC
     Route: 042
     Dates: start: 20040426, end: 20060620
  2. ANTIHYPERTENSIVES [Concomitant]
     Route: 065
  3. FERRLECIT [Concomitant]
     Route: 042
  4. IRON [Concomitant]
     Route: 065
  5. VITAMIN D [Concomitant]
     Route: 065
  6. VITAMIN C [Concomitant]
     Route: 065
  7. VITAMIN B COMPLEX CAP [Concomitant]
     Route: 065
  8. ALUMINUM HYDROXIDE GEL [Concomitant]
     Route: 065
  9. FOLIC ACID [Concomitant]
     Route: 065
  10. AMINO ACIDS [Concomitant]
     Route: 065
  11. DIURETICS [Concomitant]
     Route: 065
  12. OMEPRAZOLE [Concomitant]
     Route: 042

REACTIONS (5)
  - ANAEMIA [None]
  - CARDIAC ARREST [None]
  - GENERAL PHYSICAL HEALTH DETERIORATION [None]
  - NEOPLASM [None]
  - NEPHROGENIC ANAEMIA [None]
